FAERS Safety Report 8344038-0 (Version None)
Quarter: 2012Q2

REPORT INFORMATION
  Report Type: 
  Country: None (occurrence: None)
  Receive Date: 20120504
  Receipt Date: 20120424
  Transmission Date: 20120825
  Serious: Yes (Death)
  Sender: FDA-Public Use
  Company Number: DKLU1078611

PATIENT
  Sex: Male
  Weight: 0.44 kg

DRUGS (2)
  1. SURFACTANT [Concomitant]
  2. NEOPROFEN [Suspect]
     Indication: PATENT DUCTUS ARTERIOSUS

REACTIONS (7)
  - DEATH NEONATAL [None]
  - PULMONARY HYPERTENSION [None]
  - NEONATAL HYPOXIA [None]
  - DILATATION VENTRICULAR [None]
  - LATE METABOLIC ACIDOSIS OF NEWBORN [None]
  - VENTRICULAR HYPOKINESIA [None]
  - NEONATAL HYPOTENSION [None]
